FAERS Safety Report 5820359-8 (Version None)
Quarter: 2008Q3

REPORT INFORMATION
  Report Type: 
  Country: None (occurrence: None)
  Receive Date: 20080724
  Receipt Date: 20070608
  Transmission Date: 20090109
  Serious: No
  Sender: FDA-Public Use
  Company Number: A0656658A

PATIENT
  Age: 77 Year
  Sex: Male

DRUGS (1)
  1. AVANDIA [Suspect]
     Route: 048

REACTIONS (3)
  - CHEST PAIN [None]
  - DIZZINESS [None]
  - DYSPNOEA [None]
